FAERS Safety Report 6018617-X (Version None)
Quarter: 2008Q4

REPORT INFORMATION
  Report Type: 
  Country: None (occurrence: None)
  Receive Date: 20081223
  Receipt Date: 20081217
  Transmission Date: 20090506
  Serious: Yes (Other)
  Sender: FDA-Public Use
  Company Number: ES-ABBOTT-08P-144-0493328-00

PATIENT
  Age: 58 Year
  Sex: Female

DRUGS (1)
  1. REDUCTIL 15MG [Suspect]
     Indication: OVERWEIGHT
     Route: 048
     Dates: start: 20080601, end: 20081001

REACTIONS (6)
  - INDURATION [None]
  - LOWER EXTREMITY MASS [None]
  - PAIN [None]
  - PAINFUL DEFAECATION [None]
  - PROCTALGIA [None]
  - RECTAL POLYP [None]
